FAERS Safety Report 23518454 (Version 1)
Quarter: 2024Q1

REPORT INFORMATION
  Report Type: Spontaneous
  Country: KR (occurrence: KR)
  Receive Date: 20240213
  Receipt Date: 20240213
  Transmission Date: 20240410
  Serious: Yes (Other)
  Sender: FDA-Public Use
  Company Number: KR-009507513-2402KOR001008

PATIENT
  Age: 75 Year
  Sex: Female

DRUGS (4)
  1. INVANZ [Suspect]
     Active Substance: ERTAPENEM SODIUM
     Indication: Encephalopathy
     Dosage: 1 GRAM, QD
     Dates: start: 20211105, end: 20211122
  2. INVANZ [Suspect]
     Active Substance: ERTAPENEM SODIUM
     Indication: Encephalitis
  3. VALPROATE SODIUM [Suspect]
     Active Substance: VALPROATE SODIUM
     Indication: Encephalitis
     Dosage: 12.5 MILLILITER, Q12H
     Dates: start: 20210902, end: 20211215
  4. VALPROATE SODIUM [Suspect]
     Active Substance: VALPROATE SODIUM
     Indication: Encephalopathy

REACTIONS (1)
  - Epilepsy [Recovered/Resolved]

NARRATIVE: CASE EVENT DATE: 20211106
